FAERS Safety Report 6066460-8 (Version None)
Quarter: 2009Q1

REPORT INFORMATION
  Report Type: 
  Country: None (occurrence: None)
  Receive Date: 20090205
  Receipt Date: 20090127
  Transmission Date: 20090719
  Serious: Yes (Hospitalization)
  Sender: FDA-Public Use
  Company Number: US-BIOGENIDEC-2008BI033358

PATIENT
  Age: 36 Year
  Sex: Female
  Weight: 90 kg

DRUGS (1)
  1. TYSABRI [Suspect]
     Indication: MULTIPLE SCLEROSIS
     Route: 042
     Dates: start: 20061201

REACTIONS (7)
  - APPENDICITIS PERFORATED [None]
  - DYSPNOEA [None]
  - ILEUS [None]
  - POOR VENOUS ACCESS [None]
  - POST PROCEDURAL PNEUMONIA [None]
  - SCAR [None]
  - WEIGHT DECREASED [None]
